FAERS Safety Report 7476180-0 (Version None)
Quarter: 2011Q2

REPORT INFORMATION
  Report Type: 
  Country: None (occurrence: None)
  Receive Date: 20110512
  Receipt Date: 20110506
  Transmission Date: 20111010
  Serious: Yes (Other)
  Sender: FDA-Public Use
  Company Number: US-PFIZER INC-2011083508

PATIENT
  Sex: Female
  Weight: 68.027 kg

DRUGS (5)
  1. PROGESTERONE [Concomitant]
     Indication: PROGESTERONE DECREASED
     Dosage: UNK
  2. CORTEF [Suspect]
     Indication: ADRENAL INSUFFICIENCY
     Dosage: 5 MG A DAY
     Dates: start: 20090101
  3. CORTEF [Suspect]
     Dosage: UNKNOWN DOSE, 3.5 TO 4 A DAY
  4. THYROID [Concomitant]
     Indication: THYROID FUNCTION TEST ABNORMAL
     Dosage: 32.5 MG, 1X/DAY
     Dates: start: 20090101
  5. CORTEF [Suspect]
     Dosage: UNKNOWN DOSE, 2.5 A DAY

REACTIONS (5)
  - PALPITATIONS [None]
  - MALAISE [None]
  - FATIGUE [None]
  - DRUG HYPERSENSITIVITY [None]
  - PAIN [None]
